FAERS Safety Report 7040002-2 (Version None)
Quarter: 2010Q3

REPORT INFORMATION
  Report Type: 
  Country: None (occurrence: None)
  Receive Date: 20100927
  Receipt Date: 20100909
  Transmission Date: 20110219
  Serious: Yes (Death)
  Sender: FDA-Public Use
  Company Number: OMX-2010-00078

PATIENT
  Age: 78 Year
  Sex: Male
  Weight: 87.9978 kg

DRUGS (4)
  1. EVICEL [Suspect]
     Indication: VASCULAR OPERATION
     Dates: start: 20100806, end: 20100806
  2. HEPARIN [Concomitant]
  3. ASPIRIN [Concomitant]
  4. APPLICATOR [Concomitant]

REACTIONS (1)
  - DEATH [None]
